FAERS Safety Report 18079553 (Version 1)
Quarter: 2020Q3

REPORT INFORMATION
  Report Type: Spontaneous
  Country: US (occurrence: US)
  Receive Date: 20200728
  Receipt Date: 20200728
  Transmission Date: 20201103
  Serious: No
  Sender: FDA-Public Use
  Company Number: US-ALLERGAN-2021833US

PATIENT
  Age: 55 Year
  Sex: Female

DRUGS (1)
  1. MORPHINE SULFATE UNK [Suspect]
     Active Substance: MORPHINE SULFATE
     Indication: PROCEDURAL PAIN
     Dosage: UNK UNK, SINGLE
     Route: 042

REACTIONS (1)
  - Drug hypersensitivity [Recovered/Resolved]
